FAERS Safety Report 9707128 (Version 1)
Quarter: 2013Q4

REPORT INFORMATION
  Report Type: Spontaneous
  Country: US (occurrence: None)
  Receive Date: 20131122
  Receipt Date: 20131122
  Transmission Date: 20140711
  Serious: Yes (Hospitalization)
  Sender: FDA-Public Use
  Company Number: None

PATIENT
  Age: 63 Year
  Sex: Male
  Weight: 72.8 kg

DRUGS (4)
  1. OMEPRAZOLE [Suspect]
     Indication: GASTROOESOPHAGEAL REFLUX DISEASE
     Dosage: 30 CAP ONE (1) TIME A DAY BY MOUTH
     Route: 048
     Dates: start: 20131109, end: 20131110
  2. SIMVASTATIN [Concomitant]
  3. TAMSULOSIN [Concomitant]
  4. ZANTAC [Concomitant]

REACTIONS (4)
  - Pruritus [None]
  - Urticaria [None]
  - Chest pain [None]
  - Pharyngeal oedema [None]
